FAERS Safety Report 5046528-5 (Version None)
Quarter: 2006Q2

REPORT INFORMATION
  Report Type: 
  Country: None (occurrence: None)
  Receive Date: 20060630
  Receipt Date: 20060623
  Transmission Date: 20061013
  Serious: Yes (Other)
  Sender: FDA-Public Use
  Company Number: 2006071259

PATIENT
  Age: 8 Year
  Sex: Female
  Weight: 37.195 kg

DRUGS (1)
  1. REACTINE SYRUP (CETIRIZINE) [Suspect]
     Indication: SEASONAL ALLERGY
     Dosage: 10 MG (5 MG, 2 IN 1 D), ORAL
     Route: 048
     Dates: start: 20060501, end: 20060601

REACTIONS (3)
  - HEADACHE [None]
  - MUSCLE TWITCHING [None]
  - TIC [None]
